FAERS Safety Report 4832865-3 (Version None)
Quarter: 2005Q4

REPORT INFORMATION
  Report Type: 
  Country: None (occurrence: None)
  Receive Date: 20051121
  Receipt Date: 20051116
  Transmission Date: 20060501
  Serious: Yes (Other)
  Sender: FDA-Public Use
  Company Number: US-GLAXOSMITHKLINE-A0582553A

PATIENT
  Age: 76 Year
  Sex: Female

DRUGS (6)
  1. PAXIL [Suspect]
     Indication: OBSESSIVE-COMPULSIVE DISORDER
     Route: 048
     Dates: start: 20020101
  2. EVISTA [Concomitant]
  3. PREVACID [Concomitant]
  4. ARICEPT [Concomitant]
  5. XANAX [Concomitant]
  6. NEURONTIN [Concomitant]

REACTIONS (1)
  - DEMENTIA ALZHEIMER'S TYPE [None]
